FAERS Safety Report 7351330-5 (Version None)
Quarter: 2011Q1

REPORT INFORMATION
  Report Type: 
  Country: None (occurrence: None)
  Receive Date: 20110314
  Receipt Date: 20110228
  Transmission Date: 20110831
  Serious: Yes (Hospitalization, Other)
  Sender: FDA-Public Use
  Company Number: PHHY2011IE16835

PATIENT
  Age: 25 Year
  Sex: Male

DRUGS (4)
  1. CLOZARIL [Suspect]
     Dosage: 175 MG, QD
  2. CLOZARIL [Suspect]
     Dosage: 200 MG, QD
  3. CLOZARIL [Suspect]
     Indication: SCHIZOAFFECTIVE DISORDER
     Dosage: 175 MG, QOD
  4. OLANZAPINE [Concomitant]

REACTIONS (11)
  - UPPER RESPIRATORY TRACT INFECTION [None]
  - SYSTOLIC HYPERTENSION [None]
  - TACHYCARDIA [None]
  - PALPITATIONS [None]
  - RASH ERYTHEMATOUS [None]
  - DYSPNOEA [None]
  - MYOCARDITIS [None]
  - HEADACHE [None]
  - PYREXIA [None]
  - CHEST PAIN [None]
  - SALIVARY HYPERSECRETION [None]
